FAERS Safety Report 11518346 (Version 1)
Quarter: 2015Q3

REPORT INFORMATION
  Report Type: Spontaneous
  Country: CA (occurrence: CA)
  Receive Date: 20150917
  Receipt Date: 20150917
  Transmission Date: 20151125
  Serious: Yes (Death)
  Sender: FDA-Public Use
  Company Number: CA-TEVA-593431ACC

PATIENT
  Age: 79 Year
  Sex: Male
  Weight: 77.18 kg

DRUGS (1)
  1. AMIODARONE [Suspect]
     Active Substance: AMIODARONE
     Indication: ATRIAL FIBRILLATION
     Route: 065

REACTIONS (12)
  - Temperature intolerance [Fatal]
  - Dyspnoea [Fatal]
  - Heart rate increased [Fatal]
  - Interstitial lung disease [Fatal]
  - Fatigue [Fatal]
  - Cough [Fatal]
  - Wheezing [Fatal]
  - Acute respiratory distress syndrome [Fatal]
  - Pneumonia [Fatal]
  - Pyrexia [Fatal]
  - Rash [Fatal]
  - Pain in extremity [Fatal]
